FAERS Safety Report 5625070-4 (Version None)
Quarter: 2008Q1

REPORT INFORMATION
  Report Type: 
  Country: None (occurrence: None)
  Receive Date: 20080213
  Receipt Date: 20080205
  Transmission Date: 20080703
  Serious: Yes (Other)
  Sender: FDA-Public Use
  Company Number: US-PFIZER INC-2008010826

PATIENT
  Sex: Male
  Weight: 102.1 kg

DRUGS (6)
  1. XALATAN [Suspect]
     Indication: INTRAOCULAR PRESSURE TEST
  2. LISINOPRIL [Concomitant]
  3. ASACOL [Concomitant]
  4. COLESTYRAMINE [Concomitant]
  5. LOMOTIL [Concomitant]
  6. LOPERAMIDE HCL [Concomitant]

REACTIONS (3)
  - EYE IRRITATION [None]
  - INSOMNIA [None]
  - TYPE 2 DIABETES MELLITUS [None]
